FAERS Safety Report 17715909 (Version 1)
Quarter: 2020Q2

REPORT INFORMATION
  Report Type: Spontaneous
  Country: FR (occurrence: FR)
  Receive Date: 20200428
  Receipt Date: 20200428
  Transmission Date: 20200714
  Serious: Yes (Other)
  Sender: FDA-Public Use
  Company Number: FR-SUN PHARMACEUTICAL INDUSTRIES LTD-2020RR-245273

PATIENT
  Age: 48 Year
  Sex: Female

DRUGS (9)
  1. DOCETAXEL. [Suspect]
     Active Substance: DOCETAXEL
     Indication: METASTASES TO BONE
     Dosage: UNK
     Route: 065
     Dates: start: 2009, end: 2013
  2. TAMOXIFEN [Suspect]
     Active Substance: TAMOXIFEN
     Indication: METASTASES TO BONE
     Dosage: UNK
     Route: 065
     Dates: start: 2009, end: 2013
  3. CAPECITABINE. [Suspect]
     Active Substance: CAPECITABINE
     Indication: METASTASES TO BONE
     Dosage: UNK
     Route: 065
  4. LAPATINIB [Suspect]
     Active Substance: LAPATINIB
     Indication: METASTASES TO BONE
     Dosage: UNK
     Route: 065
  5. TRIPTORELIN [Suspect]
     Active Substance: TRIPTORELIN
     Indication: METASTASES TO BONE
     Dosage: UNK
     Route: 065
     Dates: start: 2009, end: 2013
  6. FULVESTRANT. [Suspect]
     Active Substance: FULVESTRANT
     Indication: METASTASES TO BONE
     Dosage: UNK
     Route: 065
     Dates: start: 2009, end: 2013
  7. TRASTUZUMAB. [Suspect]
     Active Substance: TRASTUZUMAB
     Indication: METASTASES TO BONE
     Dosage: UNK
     Route: 065
     Dates: start: 2009, end: 2013
  8. LETROZOLE. [Suspect]
     Active Substance: LETROZOLE
     Indication: METASTASES TO BONE
     Dosage: UNK
     Route: 065
     Dates: start: 2009, end: 2013
  9. TRASTUZUMAB. [Suspect]
     Active Substance: TRASTUZUMAB
     Indication: BREAST CANCER METASTATIC
     Dosage: 77 CYCLES
     Route: 065
     Dates: start: 201301, end: 201710

REACTIONS (1)
  - Disease progression [Unknown]

NARRATIVE: CASE EVENT DATE: 201301
